FAERS Safety Report 25755392 (Version 3)
Quarter: 2025Q4

REPORT INFORMATION
  Report Type: Spontaneous
  Country: BR (occurrence: BR)
  Receive Date: 20250903
  Receipt Date: 20251015
  Transmission Date: 20260118
  Serious: Yes (Other)
  Sender: CHEPLAPHARM
  Company Number: BR-CHEPLA-2025010432

PATIENT
  Sex: Female

DRUGS (7)
  1. CLONAZEPAM [Suspect]
     Active Substance: CLONAZEPAM
     Indication: Depression
     Dosage: MAH REF 115240011
     Route: 048
     Dates: start: 2015
  2. CLONAZEPAM [Suspect]
     Active Substance: CLONAZEPAM
     Indication: Anxiety
     Dosage: MAH REF 115240011
     Route: 048
     Dates: start: 2015
  3. CLONAZEPAM [Suspect]
     Active Substance: CLONAZEPAM
     Indication: Insomnia
     Dosage: MAH REF 115240011
     Route: 048
     Dates: start: 2015
  4. CLONAZEPAM [Suspect]
     Active Substance: CLONAZEPAM
     Indication: Depression
  5. CLONAZEPAM [Suspect]
     Active Substance: CLONAZEPAM
     Indication: Anxiety
  6. CLONAZEPAM [Suspect]
     Active Substance: CLONAZEPAM
     Indication: Insomnia
  7. QUETIAPINE [Suspect]
     Active Substance: QUETIAPINE

REACTIONS (3)
  - Drug dependence [Not Recovered/Not Resolved]
  - Product availability issue [Not Recovered/Not Resolved]
  - Headache [Not Recovered/Not Resolved]
